FAERS Safety Report 20586294 (Version 5)
Quarter: 2022Q2

REPORT INFORMATION
  Report Type: Spontaneous
  Country: US (occurrence: US)
  Receive Date: 20220313
  Receipt Date: 20220604
  Transmission Date: 20220721
  Serious: No
  Sender: FDA-Public Use
  Company Number: US-SANOFI-01005704

PATIENT
  Age: 49 Year
  Sex: Female

DRUGS (1)
  1. TOUJEO MAX [Suspect]
     Active Substance: INSULIN GLARGINE
     Indication: Type 2 diabetes mellitus
     Dosage: 10 U, BID

REACTIONS (4)
  - COVID-19 [Recovered/Resolved]
  - Thyroid disorder [Unknown]
  - Injection site pain [Recovered/Resolved]
  - Product use issue [Unknown]
